FAERS Safety Report 9233557 (Version 1)
Quarter: 2013Q2

REPORT INFORMATION
  Report Type: Spontaneous
  Country: US (occurrence: None)
  Receive Date: 20130412
  Receipt Date: 20130412
  Transmission Date: 20140414
  Serious: Yes (Other)
  Sender: FDA-Public Use
  Company Number: 1662681

PATIENT
  Sex: Male

DRUGS (1)
  1. GEMCITABINE [Suspect]
     Indication: CHEMOTHERAPY
     Route: 041
     Dates: start: 20130402

REACTIONS (2)
  - Pain [None]
  - Burning sensation [None]
